FAERS Safety Report 5623480-2 (Version None)
Quarter: 2008Q1

REPORT INFORMATION
  Report Type: 
  Country: None (occurrence: None)
  Receive Date: 20080212
  Receipt Date: 20080131
  Transmission Date: 20080703
  Serious: Yes (Other)
  Sender: FDA-Public Use
  Company Number: JP-PFIZER INC-2008009397

PATIENT
  Age: 82 Year
  Sex: Female

DRUGS (11)
  1. ZITHROMAX [Suspect]
     Indication: EMPHYSEMA
     Dosage: DAILY DOSE:500MG
     Route: 048
     Dates: start: 20080124, end: 20080125
  2. ZITHROMAX [Suspect]
     Indication: UPPER RESPIRATORY TRACT INFLAMMATION
  3. PL GRAN. [Suspect]
     Indication: UPPER RESPIRATORY TRACT INFLAMMATION
     Route: 048
     Dates: start: 20080124, end: 20080125
  4. ANTIBIOTICS [Concomitant]
     Indication: EMPHYSEMA
  5. SPIRIVA [Concomitant]
  6. CRAVIT [Concomitant]
     Route: 048
  7. HOKUNALIN [Concomitant]
  8. ALFAROL [Concomitant]
     Route: 048
  9. ASPARA-CA [Concomitant]
     Route: 048
  10. ALENDRONATE SODIUM [Concomitant]
     Route: 048
  11. VOLTAREN [Concomitant]

REACTIONS (1)
  - DELIRIUM [None]
